FAERS Safety Report 7078907-9 (Version None)
Quarter: 2010Q4

REPORT INFORMATION
  Report Type: 
  Country: None (occurrence: None)
  Receive Date: 20101102
  Receipt Date: 20101026
  Transmission Date: 20110411
  Serious: Yes (Other)
  Sender: FDA-Public Use
  Company Number: SE-PFIZER INC-2010114641

PATIENT
  Age: 64 Year
  Sex: Female

DRUGS (2)
  1. TOVIAZ [Suspect]
     Indication: MICTURITION URGENCY
     Dosage: 4 MG, 1X/DAY
     Dates: start: 20100906, end: 20100901
  2. VESICARE [Interacting]
     Indication: MICTURITION URGENCY
     Dosage: UNK
     Dates: end: 20100905

REACTIONS (7)
  - CONSTIPATION [None]
  - COUGH [None]
  - DRUG INTERACTION [None]
  - FATIGUE [None]
  - HEADACHE [None]
  - HEART RATE INCREASED [None]
  - PALPITATIONS [None]
